FAERS Safety Report 23080794 (Version 1)
Quarter: 2023Q4

REPORT INFORMATION
  Report Type: Spontaneous
  Country: BR (occurrence: BR)
  Receive Date: 20231018
  Receipt Date: 20231018
  Transmission Date: 20240110
  Serious: Yes (Hospitalization)
  Sender: FDA-Public Use
  Company Number: BR-BAYER-2023A142979

PATIENT
  Age: 82 Year

DRUGS (1)
  1. FINERENONE [Suspect]
     Active Substance: FINERENONE

REACTIONS (5)
  - Cardiac failure chronic [None]
  - Atrial fibrillation [None]
  - Hypertension [None]
  - Chronic obstructive pulmonary disease [None]
  - Chronic kidney disease [None]
